FAERS Safety Report 4897249-0 (Version None)
Quarter: 2005Q4

REPORT INFORMATION
  Report Type: 
  Country: None (occurrence: None)
  Receive Date: 20051223
  Receipt Date: 20050922
  Transmission Date: 20060501
  Serious: No
  Sender: FDA-Public Use
  Company Number: 05P-163-0311686-00

PATIENT
  Age: 49 Year
  Sex: Female

DRUGS (12)
  1. HUMIRA [Suspect]
     Indication: PSORIASIS
     Dosage: 40 MG, 1 IN 2 WK, SUBCUTANEOUS
     Route: 058
     Dates: start: 20050921
  2. HUMIRA [Suspect]
     Indication: PSORIATIC ARTHROPATHY
     Dosage: 40 MG, 1 IN 2 WK, SUBCUTANEOUS
     Route: 058
     Dates: start: 20050921
  3. METHOTREXATE [Concomitant]
  4. OMEPRAZOLE [Concomitant]
  5. TOLTERODINE TARTRATE [Concomitant]
  6. VOLTAREN [Concomitant]
  7. DARVOCET [Concomitant]
  8. HYDROXYZINE HYDROCHLORIDE [Concomitant]
  9. FLEXERIL [Concomitant]
  10. ADVAIR DISKUS 100/50 [Concomitant]
  11. SALBUTAMOL [Concomitant]
  12. CROMOLYN SODIUM [Concomitant]

REACTIONS (1)
  - INJECTION SITE IRRITATION [None]
